FAERS Safety Report 6404784-2 (Version None)
Quarter: 2009Q4

REPORT INFORMATION
  Report Type: 
  Country: None (occurrence: None)
  Receive Date: 20091016
  Receipt Date: 20091007
  Transmission Date: 20100525
  Serious: Yes (Hospitalization, Other)
  Sender: FDA-Public Use
  Company Number: PHHY2009CA43374

PATIENT
  Age: 34 Year
  Sex: Female

DRUGS (8)
  1. BASILIXIMAB [Suspect]
     Indication: TRANSPLANT
  2. PREDNISONE [Suspect]
     Dosage: 40 MG/DAILY
  3. THYMOGLOBULIN [Suspect]
  4. TACROLIMUS [Suspect]
  5. AZATHIOPRINE [Concomitant]
  6. GANCICLOVIR [Concomitant]
     Route: 042
  7. TRIMETHOPRIM [Concomitant]
  8. SULFAMETHOXAZOLE [Concomitant]

REACTIONS (8)
  - BRAIN ABSCESS [None]
  - BRAIN OEDEMA [None]
  - CEREBRAL ASPERGILLOSIS [None]
  - DEPRESSED LEVEL OF CONSCIOUSNESS [None]
  - ENTEROBACTER INFECTION [None]
  - HAEMOPHILUS INFECTION [None]
  - HEPATIC ENZYME INCREASED [None]
  - LOWER RESPIRATORY TRACT INFECTION [None]
